FAERS Safety Report 19122955 (Version 2)
Quarter: 2021Q2

REPORT INFORMATION
  Report Type: Spontaneous
  Country: IR (occurrence: IR)
  Receive Date: 20210412
  Receipt Date: 20210420
  Transmission Date: 20210717
  Serious: Yes (Hospitalization, Other)
  Sender: FDA-Public Use
  Company Number: IR-VISTAPHARM, INC.-VER202104-001069

PATIENT
  Age: 18 Month
  Sex: Female

DRUGS (1)
  1. METHADONE [Suspect]
     Active Substance: METHADONE HYDROCHLORIDE
     Indication: PRODUCT USED FOR UNKNOWN INDICATION
     Dosage: 3 CC

REACTIONS (5)
  - Stress cardiomyopathy [Recovered/Resolved]
  - Depressed level of consciousness [Recovered/Resolved]
  - Generalised tonic-clonic seizure [Unknown]
  - Accidental poisoning [Unknown]
  - Pulmonary oedema [Unknown]
